FAERS Safety Report 12629915 (Version 2)
Quarter: 2017Q1

REPORT INFORMATION
  Report Type: Report from Study
  Country: CN (occurrence: CN)
  Receive Date: 20160808
  Receipt Date: 20170116
  Transmission Date: 20170428
  Serious: Yes (Other)
  Sender: FDA-Public Use
  Company Number: CN-ROCHE-1788922

PATIENT
  Sex: Male
  Weight: 60 kg

DRUGS (1)
  1. AVASTIN [Suspect]
     Active Substance: BEVACIZUMAB
     Indication: NON-SMALL CELL LUNG CANCER
     Route: 041
     Dates: start: 20160407

REACTIONS (11)
  - General physical health deterioration [Recovering/Resolving]
  - Asthenia [Recovering/Resolving]
  - Discomfort [Recovering/Resolving]
  - White blood cell count decreased [Unknown]
  - Pleural effusion [Recovered/Resolved]
  - Decreased appetite [Recovering/Resolving]
  - Rash pustular [Recovered/Resolved]
  - Tumour haemorrhage [Recovered/Resolved]
  - Immunodeficiency [Recovering/Resolving]
  - Chest discomfort [Recovered/Resolved]
  - Cough [Recovered/Resolved]
